FAERS Safety Report 8577643-7 (Version None)
Quarter: 2012Q3

REPORT INFORMATION
  Report Type: 
  Country: None (occurrence: None)
  Receive Date: 20120807
  Receipt Date: 20101230
  Transmission Date: 20120928
  Serious: No
  Sender: FDA-Public Use
  Company Number: US-BAYER-2011-027301

PATIENT
  Age: 26 Year
  Sex: Female
  Weight: 74.376 kg

DRUGS (2)
  1. ALEVE (CAPLET) [Suspect]
     Indication: MIGRAINE
     Dosage: 660 MG, ONCE, BOTTLE COUNT 24S
     Route: 048
  2. BUTALBITAL [Concomitant]

REACTIONS (3)
  - HEART RATE INCREASED [None]
  - CHEST PAIN [None]
  - DYSPNOEA [None]
